FAERS Safety Report 14873803 (Version 1)
Quarter: 2018Q2

REPORT INFORMATION
  Report Type: Spontaneous
  Country: CN (occurrence: CN)
  Receive Date: 20180510
  Receipt Date: 20180510
  Transmission Date: 20180711
  Serious: Yes (Life-Threatening)
  Sender: FDA-Public Use
  Company Number: CN-FRESENIUS KABI-FK201805573

PATIENT
  Age: 32 Year
  Sex: Female
  Weight: 47 kg

DRUGS (4)
  1. DEXMEDETOMIDINE (MANUFACTURER UNKNOWN) [Suspect]
     Active Substance: DEXMEDETOMIDINE
     Indication: GENERAL ANAESTHESIA
     Route: 065
  2. CISATRACURIUM INJECTION (MANUFACTURER UNKNOWN) [Suspect]
     Active Substance: CISATRACURIUM
     Indication: GENERAL ANAESTHESIA
     Route: 065
  3. PROPOFOL (MANUFACTURER UNKNOWN) [Suspect]
     Active Substance: PROPOFOL
     Indication: GENERAL ANAESTHESIA
     Route: 065
  4. REMIFENTANIL (MANUFACTURER UNKNOWN) [Suspect]
     Active Substance: REMIFENTANIL
     Indication: MAINTENANCE OF ANAESTHESIA
     Route: 065

REACTIONS (3)
  - Sinus tachycardia [Recovered/Resolved]
  - Thyrotoxic crisis [Recovered/Resolved]
  - Cardiogenic shock [Recovered/Resolved]
